FAERS Safety Report 4505440-8 (Version None)
Quarter: 2004Q4

REPORT INFORMATION
  Report Type: 
  Country: None (occurrence: None)
  Receive Date: 20041116
  Receipt Date: 20041102
  Transmission Date: 20050328
  Serious: Yes (Death, Hospitalization)
  Sender: FDA-Public Use
  Company Number: 2003IM000831

PATIENT
  Age: 77 Year
  Sex: Female
  Weight: 61 kg

DRUGS (14)
  1. INTERFERON GAMMA -1B (INTERFERON GAMMA - 1B) [Suspect]
     Indication: OVARIAN CANCER
     Dosage: 100 MCG;TIW;SUBCUTANEOUS
     Route: 058
     Dates: start: 20030728, end: 20030730
  2. CARBOPLATIN [Suspect]
     Indication: OVARIAN CANCER
     Dosage: 553 MG;Q3W;INTRAVENOUS
     Route: 042
     Dates: start: 20030728, end: 20030728
  3. PACLITAXEL [Suspect]
     Indication: OVARIAN CANCER
     Dosage: 273 MG;Q3W;INTRAVENOUS
     Route: 042
     Dates: start: 20030728, end: 20030728
  4. CARDIZEM [Concomitant]
  5. DILAUDID [Concomitant]
  6. STEMETIL TABLET [Concomitant]
  7. SERAX [Concomitant]
  8. LOSEC [Concomitant]
  9. SENOKOT [Concomitant]
  10. PREDNISONE [Concomitant]
  11. ZOFRAN [Concomitant]
  12. BENADRYL [Concomitant]
  13. ZANTAC [Concomitant]
  14. TYLENOL (CAPLET) [Concomitant]

REACTIONS (16)
  - ATELECTASIS [None]
  - ATRIAL FIBRILLATION [None]
  - CARDIAC DISORDER [None]
  - MALNUTRITION [None]
  - NEUTROPENIA [None]
  - PLEURAL EFFUSION [None]
  - PNEUMONIA HAEMOPHILUS [None]
  - PNEUMONIA STAPHYLOCOCCAL [None]
  - PULMONARY EMBOLISM [None]
  - PULMONARY HYPERTENSION [None]
  - PULMONARY OEDEMA [None]
  - PYREXIA [None]
  - REFUSAL OF TREATMENT BY PATIENT [None]
  - RESPIRATORY FAILURE [None]
  - STAPHYLOCOCCAL SEPSIS [None]
  - WHITE BLOOD CELL COUNT DECREASED [None]
